FAERS Safety Report 20740039 (Version 1)
Quarter: 2022Q2

REPORT INFORMATION
  Report Type: Spontaneous
  Country: None (occurrence: AU)
  Receive Date: 20220422
  Receipt Date: 20220422
  Transmission Date: 20220721
  Serious: Yes (Hospitalization)
  Sender: FDA-Public Use
  Company Number: AU-Nostrum Laboratories, Inc.-2128074

PATIENT
  Age: 59 Year
  Sex: Male

DRUGS (1)
  1. TRAMADOL HYDROCHLORIDE AND ACETAMINOPHEN [Suspect]
     Active Substance: ACETAMINOPHEN\TRAMADOL HYDROCHLORIDE
     Indication: Product used for unknown indication
     Route: 048

REACTIONS (4)
  - Delirium [Recovered/Resolved]
  - Aggression [Recovered/Resolved]
  - Drug withdrawal syndrome [Recovered/Resolved]
  - Hypertension [Unknown]
